FAERS Safety Report 9716673 (Version 1)
Quarter: 2013Q4

REPORT INFORMATION
  Report Type: Spontaneous
  Country: DE (occurrence: DE)
  Receive Date: 20131127
  Receipt Date: 20131127
  Transmission Date: 20140711
  Serious: Yes (Other)
  Sender: FDA-Public Use
  Company Number: DE-009507513-1311DEU009632

PATIENT
  Age: 61 Year
  Sex: Male

DRUGS (5)
  1. MIRTAZAPINE [Suspect]
     Dosage: 15 MG, ONCE
     Route: 048
     Dates: start: 20130307, end: 20130307
  2. MIRTAZAPINE [Suspect]
     Dosage: 7.5 MG, QD
     Route: 048
     Dates: start: 20130313, end: 20130320
  3. MIRTAZAPINE [Suspect]
     Dosage: 15 MG, QD
     Route: 048
     Dates: start: 20130321
  4. LISINOPRIL [Suspect]
     Dosage: 10 MG, QD
     Route: 048
  5. HCT HEXAL [Suspect]
     Dosage: 12.5 MG, QD
     Route: 048

REACTIONS (1)
  - Circulatory collapse [Recovered/Resolved]
